FAERS Safety Report 25372687 (Version 2)
Quarter: 2025Q2

REPORT INFORMATION
  Report Type: Report from Study
  Country: CA (occurrence: CA)
  Receive Date: 20250529
  Receipt Date: 20250603
  Transmission Date: 20250717
  Serious: Yes (Other)
  Sender: ABBVIE
  Company Number: CA-ABBVIE-6302763

PATIENT
  Age: 56 Year
  Sex: Male

DRUGS (1)
  1. LUPRON [Suspect]
     Active Substance: LEUPROLIDE ACETATE
     Indication: Prostate cancer
     Route: 065
     Dates: start: 202207, end: 202404

REACTIONS (3)
  - Metastasis [Unknown]
  - Hypoaesthesia [Recovered/Resolved]
  - Prostatic specific antigen increased [Unknown]

NARRATIVE: CASE EVENT DATE: 20240101
